FAERS Safety Report 5977735-2 (Version None)
Quarter: 2008Q4

REPORT INFORMATION
  Report Type: 
  Country: None (occurrence: None)
  Receive Date: 20081202
  Receipt Date: 20081202
  Transmission Date: 20090506
  Serious: Yes (Hospitalization)
  Sender: FDA-Public Use
  Company Number: None

PATIENT
  Age: 60 Year
  Sex: Female
  Weight: 68.9467 kg

DRUGS (7)
  1. ENBREL [Suspect]
     Indication: RHEUMATOID ARTHRITIS
     Dosage: 50MG ONCE A WEEK SQ
     Route: 058
     Dates: start: 19990101, end: 20080902
  2. AUGMENTUM [Concomitant]
  3. KAFLAX [Concomitant]
  4. LEVAQUIN [Concomitant]
  5. VYVOX [Concomitant]
  6. VACONMYCIN [Concomitant]
  7. SYNTHROID [Concomitant]

REACTIONS (6)
  - BLISTER [None]
  - BUNION [None]
  - CELLULITIS [None]
  - ERYTHEMA [None]
  - INFLAMMATION [None]
  - WOUND SECRETION [None]
